FAERS Safety Report 12234705 (Version 1)
Quarter: 2016Q2

REPORT INFORMATION
  Report Type: Spontaneous
  Country: US (occurrence: None)
  Receive Date: 20160401
  Receipt Date: 20160401
  Transmission Date: 20160815
  Serious: No
  Sender: FDA-Public Use
  Company Number: None

PATIENT
  Age: 59 Year
  Sex: Female
  Weight: 73.94 kg

DRUGS (2)
  1. GENVOYA [Suspect]
     Active Substance: COBICISTAT\ELVITEGRAVIR\EMTRICITABINE\TENOFOVIR ALAFENAMIDE FUMARATE
     Indication: HIV INFECTION
     Dates: start: 20160220, end: 20160331
  2. PROCARDIA [Suspect]
     Active Substance: NIFEDIPINE

REACTIONS (4)
  - Dry mouth [None]
  - Peripheral swelling [None]
  - Drug ineffective [None]
  - Drug interaction [None]

NARRATIVE: CASE EVENT DATE: 20160331
